FAERS Safety Report 20854599 (Version 2)
Quarter: 2022Q2

REPORT INFORMATION
  Report Type: Spontaneous
  Country: US (occurrence: US)
  Receive Date: 20220520
  Receipt Date: 20220525
  Transmission Date: 20220720
  Serious: No
  Sender: FDA-Public Use
  Company Number: US-PFIZER INC-202200737914

PATIENT
  Age: 65 Year
  Sex: Female
  Weight: 107.05 kg

DRUGS (1)
  1. PAXLOVID [Suspect]
     Active Substance: NIRMATRELVIR\RITONAVIR
     Indication: COVID-19 treatment
     Dosage: RITONAVIR 100MG AND NIRMATRELVIR 150MG PER CAPSULE, TAKE ORALLY WITH OR WITHOUT FOOD)
     Route: 048
     Dates: start: 20220518

REACTIONS (2)
  - Dysgeusia [Not Recovered/Not Resolved]
  - Product taste abnormal [Not Recovered/Not Resolved]

NARRATIVE: CASE EVENT DATE: 20220518
